FAERS Safety Report 12297303 (Version 4)
Quarter: 2016Q4

REPORT INFORMATION
  Report Type: Report from Study
  Country: JP (occurrence: JP)
  Receive Date: 20160422
  Receipt Date: 20161227
  Transmission Date: 20170207
  Serious: Yes (Hospitalization, Other)
  Sender: FDA-Public Use
  Company Number: JP-BRISTOL-MYERS SQUIBB COMPANY-BMS-2016-029891

PATIENT
  Age: 38 Year
  Sex: Male

DRUGS (3)
  1. LYRICA [Interacting]
     Active Substance: PREGABALIN
     Indication: CANCER PAIN
     Route: 048
  2. FENTANYL. [Interacting]
     Active Substance: FENTANYL
     Indication: CANCER PAIN
     Route: 065
  3. NIVOLUMAB [Suspect]
     Active Substance: NIVOLUMAB
     Indication: NON-SMALL CELL LUNG CANCER
     Dosage: 200 MG, QCYCLE; 20 MG, 100 MG
     Route: 041
     Dates: start: 20160401

REACTIONS (3)
  - Hypoaesthesia [Recovered/Resolved]
  - Delirium [Recovered/Resolved]
  - Pruritus generalised [Recovered/Resolved]

NARRATIVE: CASE EVENT DATE: 20160412
